FAERS Safety Report 7421755 (Version 2)
Quarter: 2014Q1

REPORT INFORMATION
  Report Type: Spontaneous
  Country: US (occurrence: US)
  Receive Date: 20100616
  Receipt Date: 20140218
  Transmission Date: 20141002
  Serious: No
  Sender: FDA-Public Use
  Company Number: US-ASTRAZENECA-2009SE25798

PATIENT
  Age: 67 Year
  Sex: Male
  Weight: 72.6 kg

DRUGS (3)
  1. PULMICORT FLEXHALER [Suspect]
     Indication: ASTHMA
     Route: 055
     Dates: start: 200810
  2. SIMVASTATIN [Concomitant]
  3. FEXOFENADINE [Concomitant]

REACTIONS (2)
  - Investigation abnormal [Not Recovered/Not Resolved]
  - Circumstance or information capable of leading to medication error [Unknown]
